FAERS Safety Report 6248147-1 (Version None)
Quarter: 2009Q2

REPORT INFORMATION
  Report Type: 
  Country: None (occurrence: None)
  Receive Date: 20090624
  Receipt Date: 20090624
  Transmission Date: 20091009
  Serious: Yes (Disabling)
  Sender: FDA-Public Use
  Company Number: None

PATIENT
  Sex: Female
  Weight: 68.0396 kg

DRUGS (1)
  1. ACTONEL [Suspect]
     Indication: OSTEOPENIA
     Dosage: 35 MG WEEKLY ORAL
     Route: 048
     Dates: start: 20000101, end: 20080101

REACTIONS (2)
  - OSTEONECROSIS [None]
  - TOOTH DISORDER [None]
